FAERS Safety Report 18164613 (Version 2)
Quarter: 2020Q3

REPORT INFORMATION
  Report Type: Report from Study
  Country: TW (occurrence: TW)
  Receive Date: 20200818
  Receipt Date: 20200821
  Transmission Date: 20201103
  Serious: Yes (Death)
  Sender: FDA-Public Use
  Company Number: NVSC2020TW227389

PATIENT
  Age: 61 Year
  Sex: Female
  Weight: 37 kg

DRUGS (1)
  1. BYL719 [Suspect]
     Active Substance: ALPELISIB
     Indication: BREAST CANCER
     Dosage: UNK
     Route: 065

REACTIONS (4)
  - Hyperglycaemia [Unknown]
  - Hypercapnia [Fatal]
  - Pneumonia [Fatal]
  - Respiratory failure [Fatal]
